FAERS Safety Report 7349949-0 (Version None)
Quarter: 2011Q1

REPORT INFORMATION
  Report Type: 
  Country: None (occurrence: None)
  Receive Date: 20110314
  Receipt Date: 20110303
  Transmission Date: 20110831
  Serious: Yes (Hospitalization)
  Sender: FDA-Public Use
  Company Number: DE-ROCHE-763689

PATIENT
  Sex: Male
  Weight: 81 kg

DRUGS (5)
  1. IRINOTECAN [Suspect]
     Route: 042
     Dates: start: 20101130, end: 20101130
  2. BEVACIZUMAB [Suspect]
     Route: 042
     Dates: start: 20101130, end: 20101130
  3. CALCIUMFOLINAT [Suspect]
     Dosage: PER INFUSION 24-HOUR PUMP
     Route: 042
     Dates: start: 20101130, end: 20101201
  4. FLUOROURACIL [Suspect]
     Dosage: PER INFUSION WITH 24-HOUR PUMP
     Route: 042
     Dates: start: 20101130, end: 20101201
  5. GRANISETRON HCL [Suspect]
     Route: 040
     Dates: start: 20101130, end: 20101130

REACTIONS (5)
  - POLLAKIURIA [None]
  - URINARY TRACT INFECTION [None]
  - PYREXIA [None]
  - HYDRONEPHROSIS [None]
  - DYSURIA [None]
